FAERS Safety Report 8120432-8 (Version None)
Quarter: 2012Q1

REPORT INFORMATION
  Report Type: 
  Country: None (occurrence: None)
  Receive Date: 20120207
  Receipt Date: 20120125
  Transmission Date: 20120608
  Serious: Yes (Hospitalization)
  Sender: FDA-Public Use
  Company Number: ES-ELI_LILLY_AND_COMPANY-ES201201007175

PATIENT
  Sex: Male
  Weight: 55 kg

DRUGS (3)
  1. ZYTRAM [Concomitant]
     Indication: PAIN
     Dosage: 200 MG, QD
     Route: 048
  2. ACETAMINOPHEN [Concomitant]
     Indication: ANALGESIC THERAPY
     Dosage: UNK, PRN
     Route: 048
  3. FORTEO [Suspect]
     Indication: OSTEOPOROSIS
     Dosage: 20 UG, QD
     Route: 058
     Dates: start: 20100729, end: 20120112

REACTIONS (4)
  - CEREBROVASCULAR ACCIDENT [None]
  - BALANCE DISORDER [None]
  - PNEUMONIA [None]
  - POOR PERIPHERAL CIRCULATION [None]
